FAERS Safety Report 9266564 (Version 1)
Quarter: 2013Q2

REPORT INFORMATION
  Report Type: Report from Study
  Country: GB (occurrence: GB)
  Receive Date: 20130502
  Receipt Date: 20130502
  Transmission Date: 20140414
  Serious: Yes (Death, Other)
  Sender: FDA-Public Use
  Company Number: GB-ROCHE-779859

PATIENT
  Age: 56 Year
  Sex: Male
  Weight: 67 kg

DRUGS (6)
  1. RITUXIMAB [Suspect]
     Indication: RHEUMATOID ARTHRITIS
     Route: 065
  2. LEFLUNOMIDE [Concomitant]
  3. PREDNISOLONE [Concomitant]
  4. CO-CODAMOL [Concomitant]
  5. LANSOPRAZOLE [Concomitant]
  6. NITROFURANTOIN [Concomitant]

REACTIONS (2)
  - Pneumonia staphylococcal [Fatal]
  - Chronic obstructive pulmonary disease [Fatal]
